FAERS Safety Report 9344226 (Version 1)
Quarter: 2013Q2

REPORT INFORMATION
  Report Type: Spontaneous
  Country: PL (occurrence: PL)
  Receive Date: 20130612
  Receipt Date: 20130612
  Transmission Date: 20140414
  Serious: Yes (Hospitalization, Other)
  Sender: FDA-Public Use
  Company Number: PL-BAYER-2013-070841

PATIENT
  Sex: Female

DRUGS (1)
  1. GADOVIST [Suspect]
     Indication: PRODUCT USED FOR UNKNOWN INDICATION
     Dosage: UNK
     Route: 037
     Dates: start: 20130607, end: 20130607

REACTIONS (3)
  - Convulsion [Unknown]
  - Incorrect route of drug administration [None]
  - Hydrocephalus [None]
